FAERS Safety Report 5763428-3 (Version None)
Quarter: 2008Q2

REPORT INFORMATION
  Report Type: 
  Country: None (occurrence: None)
  Receive Date: 20080528
  Receipt Date: 20080304
  Transmission Date: 20081010
  Serious: No
  Sender: FDA-Public Use
  Company Number: PHEH2008US02517

PATIENT
  Age: 80 Year
  Sex: Female

DRUGS (1)
  1. TASIGNA [Suspect]
     Dosage: BID, ORAL
     Route: 048

REACTIONS (3)
  - DIARRHOEA [None]
  - PLATELET COUNT INCREASED [None]
  - WHITE BLOOD CELL COUNT INCREASED [None]
